FAERS Safety Report 5819309-X (Version None)
Quarter: 2008Q3

REPORT INFORMATION
  Report Type: 
  Country: None (occurrence: None)
  Receive Date: 20080723
  Receipt Date: 20080708
  Transmission Date: 20090109
  Serious: Yes (Other)
  Sender: FDA-Public Use
  Company Number: JP-MERCK-0807USA04125

PATIENT
  Age: 67 Year
  Sex: Male

DRUGS (1)
  1. FOSAMAX [Suspect]
     Indication: OSTEOPOROSIS
     Route: 048
     Dates: start: 20080101, end: 20080101

REACTIONS (3)
  - FACIAL PALSY [None]
  - HYPOACUSIS [None]
  - TRIGEMINAL NEURALGIA [None]
